FAERS Safety Report 21000977 (Version 18)
Quarter: 2024Q4

REPORT INFORMATION
  Report Type: Report from Study
  Country: US (occurrence: US)
  Receive Date: 20220624
  Receipt Date: 20241127
  Transmission Date: 20250114
  Serious: Yes (Hospitalization, Other)
  Sender: TAKEDA
  Company Number: US-TAKEDA-2021TUS026888

PATIENT
  Age: 84 Year
  Sex: Female
  Weight: 123 kg

DRUGS (33)
  1. HUMAN IMMUNOGLOBULIN G [Suspect]
     Active Substance: HUMAN IMMUNOGLOBULIN G
     Indication: Immunodeficiency common variable
     Dosage: 12 GRAM, 1/WEEK
     Dates: start: 20180802
  2. INFLUENZA VIRUS VACCINE [Suspect]
     Active Substance: INFLUENZA VIRUS VACCINE
     Indication: Product used for unknown indication
     Dosage: UNK
  3. EPINEPHRINE [Concomitant]
     Active Substance: EPINEPHRINE
     Dosage: UNK
  4. ELIQUIS [Concomitant]
     Active Substance: APIXABAN
     Dosage: UNK
  5. LEVOTHYROXINE SODIUM [Concomitant]
     Active Substance: LEVOTHYROXINE SODIUM
     Dosage: UNK
  6. ROPINIROLE HYDROCHLORIDE [Concomitant]
     Active Substance: ROPINIROLE HYDROCHLORIDE
     Dosage: UNK
  7. FLUTICASONE PROPIONATE [Concomitant]
     Active Substance: FLUTICASONE PROPIONATE
     Dosage: UNK
  8. GENTEAL SEVERE [Concomitant]
     Active Substance: HYPROMELLOSE 2910 (4000 MPA.S)
     Dosage: UNK
  9. GABAPENTIN [Concomitant]
     Active Substance: GABAPENTIN
     Dosage: UNK
  10. TRAMADOL HCL [Concomitant]
     Active Substance: TRAMADOL HYDROCHLORIDE
     Dosage: UNK
  11. LASIX [Concomitant]
     Active Substance: FUROSEMIDE
     Dosage: UNK
  12. POLYETHYLENE GLYCOL [Concomitant]
     Active Substance: POLYETHYLENE GLYCOL
     Dosage: UNK
  13. DOCUSATE SODIUM [Concomitant]
     Active Substance: DOCUSATE SODIUM
     Dosage: UNK
  14. GUAIFENESIN AND DEXTROMETHORPHAN [Concomitant]
     Active Substance: DEXTROMETHORPHAN\GUAIFENESIN
     Dosage: UNK
  15. VITAMIN D3 [Concomitant]
     Active Substance: CHOLECALCIFEROL
     Dosage: UNK
  16. AMIODARONE HYDROCHLORIDE [Concomitant]
     Active Substance: AMIODARONE HYDROCHLORIDE
     Dosage: UNK
  17. SIMVASTATIN [Concomitant]
     Active Substance: SIMVASTATIN
     Dosage: UNK
  18. CYCLOBENZAPRINE [Concomitant]
     Active Substance: CYCLOBENZAPRINE
     Dosage: UNK
  19. MONTELUKAST SODIUM [Concomitant]
     Active Substance: MONTELUKAST SODIUM
     Dosage: UNK
  20. VITAMIN B [Concomitant]
     Active Substance: VITAMIN B
     Dosage: UNK
  21. AMLODIPINE BESYLATE [Concomitant]
     Active Substance: AMLODIPINE BESYLATE
     Dosage: UNK
  22. LIDOCAINE [Concomitant]
     Active Substance: LIDOCAINE
     Dosage: UNK
  23. FOLIC ACID [Concomitant]
     Active Substance: FOLIC ACID
     Dosage: UNK
  24. AMLODIPINE [Concomitant]
     Active Substance: AMLODIPINE BESYLATE
     Dosage: UNK
  25. MONTELUKAST [Concomitant]
     Active Substance: MONTELUKAST
     Dosage: UNK
  26. LEVOTHYROXINE [Concomitant]
     Active Substance: LEVOTHYROXINE
     Dosage: UNK
  27. DOCUSATE [Concomitant]
     Active Substance: DOCUSATE
     Dosage: UNK
  28. PANTOPRAZOLE SODIUM [Concomitant]
     Active Substance: PANTOPRAZOLE SODIUM
     Dosage: UNK
  29. VITAMIN C [Concomitant]
     Active Substance: ASCORBIC ACID
     Dosage: UNK
  30. FLONASE [Concomitant]
     Active Substance: FLUTICASONE PROPIONATE
     Dosage: UNK
  31. PAXLOVID [Concomitant]
     Active Substance: NIRMATRELVIR\RITONAVIR
     Dosage: UNK
  32. DIPHENHYDRAMINE [Concomitant]
     Active Substance: DIPHENHYDRAMINE
     Dosage: UNK
  33. DIPHENHYDRAMINE HYDROCHLORIDE [Concomitant]
     Active Substance: DIPHENHYDRAMINE HYDROCHLORIDE
     Dosage: UNK

REACTIONS (24)
  - Cellulitis [Unknown]
  - Malignant melanoma [Unknown]
  - Renal disorder [Unknown]
  - Urinary tract infection [Unknown]
  - Arthritis [Unknown]
  - Ocular hyperaemia [Unknown]
  - Osteoporosis [Unknown]
  - COVID-19 [Unknown]
  - Paranasal sinus hypersecretion [Unknown]
  - Back disorder [Unknown]
  - Infusion site discharge [Unknown]
  - Device breakage [Unknown]
  - Infusion site hypersensitivity [Unknown]
  - Fungal infection [Unknown]
  - Nerve compression [Unknown]
  - Nerve injury [Unknown]
  - Infusion site reaction [Recovered/Resolved]
  - Infusion site warmth [Recovered/Resolved]
  - Injection site erythema [Unknown]
  - Injection site pain [Unknown]
  - Infusion site erythema [Recovered/Resolved]
  - Infusion site pruritus [Recovered/Resolved]
  - Arthralgia [Unknown]
  - Infusion site pain [Unknown]

NARRATIVE: CASE EVENT DATE: 20220611
